FAERS Safety Report 18852906 (Version 1)
Quarter: 2021Q1

REPORT INFORMATION
  Report Type: Spontaneous
  Country: US (occurrence: US)
  Receive Date: 20210205
  Receipt Date: 20210205
  Transmission Date: 20210420
  Serious: Yes (Hospitalization, Other)
  Sender: FDA-Public Use
  Company Number: US-DRREDDYS-USA/USA/21/0131523

PATIENT
  Age: 67 Year
  Sex: Male

DRUGS (2)
  1. HEPARIN SODIUM. [Suspect]
     Active Substance: HEPARIN SODIUM
     Indication: THROMBOSIS
     Dosage: DRIP
  2. WARFARIN [Suspect]
     Active Substance: WARFARIN
     Indication: THROMBOSIS

REACTIONS (1)
  - Duodenal ulcer haemorrhage [Recovered/Resolved]
